FAERS Safety Report 6523115-0 (Version None)
Quarter: 2009Q4

REPORT INFORMATION
  Report Type: 
  Country: None (occurrence: None)
  Receive Date: 20091222
  Receipt Date: 20091214
  Transmission Date: 20100525
  Serious: Yes (Hospitalization, Other)
  Sender: FDA-Public Use
  Company Number: 234944K09USA

PATIENT
  Age: 54 Year
  Sex: Female
  Weight: 77 kg

DRUGS (8)
  1. REBIF [Suspect]
     Indication: MULTIPLE SCLEROSIS
     Dosage: 44 MCG, 3 IN 1 WEEKS, SUBCUTANEOUS
     Route: 058
     Dates: start: 20060503
  2. PROVIGIL [Concomitant]
  3. CYMBALTA [Concomitant]
  4. XANAX [Concomitant]
  5. BACLOFEN [Concomitant]
  6. AMANTADINE HCL [Concomitant]
  7. UNSPECIFIED MEDICATIONS (ALL OTHER THERAPEUTIC PRODUCTS) [Concomitant]
  8. IBUPROFEN [Concomitant]

REACTIONS (7)
  - ABDOMINAL PAIN UPPER [None]
  - ADHESION [None]
  - AFFECTIVE DISORDER [None]
  - BLADDER SPASM [None]
  - FATIGUE [None]
  - THROMBOSIS [None]
  - VOMITING [None]
